FAERS Safety Report 5828078-9 (Version None)
Quarter: 2008Q3

REPORT INFORMATION
  Report Type: 
  Country: None (occurrence: None)
  Receive Date: 20080730
  Receipt Date: 20070815
  Transmission Date: 20090109
  Serious: No
  Sender: FDA-Public Use
  Company Number: A0671995A

PATIENT
  Age: 6 Week
  Sex: Female

DRUGS (1)
  1. ZANTAC [Suspect]
     Route: 048
     Dates: start: 20070101

REACTIONS (2)
  - DYSGEUSIA [None]
  - ODYNOPHAGIA [None]
